FAERS Safety Report 5223654-9 (Version None)
Quarter: 2007Q1

REPORT INFORMATION
  Report Type: 
  Country: None (occurrence: None)
  Receive Date: 20070130
  Receipt Date: 20070124
  Transmission Date: 20070707
  Serious: Yes (Hospitalization)
  Sender: FDA-Public Use
  Company Number: JP-SANOFI-SYNTHELABO-F01200700086

PATIENT
  Sex: Male

DRUGS (18)
  1. KENALOG [Concomitant]
     Route: 048
     Dates: start: 20060101
  2. DECADRON [Concomitant]
     Route: 042
     Dates: start: 20060914
  3. KYTRIL [Concomitant]
     Route: 042
     Dates: start: 20060914
  4. AZUNOL [Concomitant]
     Route: 048
     Dates: start: 20061006
  5. FLOMOX [Concomitant]
     Route: 048
     Dates: start: 20061225, end: 20061231
  6. NEW LECICARBON SUPPOSITORY [Concomitant]
     Route: 054
     Dates: start: 20070104
  7. CERNILTON [Concomitant]
     Route: 048
     Dates: start: 20061218
  8. LAXOBERON [Concomitant]
     Route: 048
     Dates: start: 20061213
  9. PURSENNID [Concomitant]
     Route: 048
     Dates: start: 20060916
  10. BLOPRESS [Concomitant]
     Route: 048
     Dates: start: 20061208
  11. NORVASC [Concomitant]
     Route: 048
     Dates: start: 20061120
  12. LOXONIN [Concomitant]
     Route: 048
     Dates: start: 20061012
  13. OXYCONTIN [Concomitant]
     Route: 048
     Dates: start: 20060913
  14. MAGNESIUM OXIDE [Concomitant]
     Route: 048
     Dates: start: 20060815
  15. PARIET [Concomitant]
     Route: 048
     Dates: start: 20060907
  16. BEVACIZUMAB [Suspect]
     Route: 042
     Dates: start: 20070104, end: 20070104
  17. XELODA [Suspect]
     Route: 048
     Dates: start: 20070104, end: 20070111
  18. OXALIPLATIN [Suspect]
     Indication: RECTAL CANCER
     Route: 042
     Dates: start: 20070104, end: 20070104

REACTIONS (1)
  - RECTAL STENOSIS [None]
